FAERS Safety Report 7378686-1 (Version None)
Quarter: 2011Q1

REPORT INFORMATION
  Report Type: 
  Country: None (occurrence: None)
  Receive Date: 20110328
  Receipt Date: 20110318
  Transmission Date: 20110831
  Serious: Yes (Hospitalization, Other)
  Sender: FDA-Public Use
  Company Number: AT-ABBOTT-11P-009-0709517-00

PATIENT
  Sex: Male

DRUGS (6)
  1. HUMIRA [Suspect]
     Route: 058
     Dates: end: 20101015
  2. BUDESONIDE [Concomitant]
     Indication: CROHN'S DISEASE
     Dosage: 9 MG DAILY
  3. HUMIRA [Suspect]
     Indication: CROHN'S DISEASE
     Dosage: ONCE
     Route: 058
     Dates: start: 20080806, end: 20080806
  4. AZATHIOPRINE [Concomitant]
     Indication: CROHN'S DISEASE
     Dosage: 200 MG DAILY
  5. PENTASA [Concomitant]
     Indication: CROHN'S DISEASE
     Dosage: 2X2
     Dates: start: 20050101
  6. HUMIRA [Suspect]
     Dosage: WEEK 2
     Route: 058

REACTIONS (1)
  - ILEUS [None]
